FAERS Safety Report 10361684 (Version 2)
Quarter: 2014Q3

REPORT INFORMATION
  Report Type: Report from Study
  Country: CA (occurrence: CA)
  Receive Date: 20140805
  Receipt Date: 20140930
  Transmission Date: 20150326
  Serious: Yes (Other)
  Sender: FDA-Public Use
  Company Number: CA-ROCHE-1443318

PATIENT
  Sex: Female

DRUGS (12)
  1. DOCUSATE [Concomitant]
     Active Substance: DOCUSATE
  2. CORTISONE [Concomitant]
     Active Substance: CORTISONE\HYDROCORTISONE
  3. FOLIC ACID. [Concomitant]
     Active Substance: FOLIC ACID
  4. RITUXAN [Suspect]
     Active Substance: RITUXIMAB
     Indication: GRAFT VERSUS HOST DISEASE
     Route: 042
     Dates: start: 20140224
  5. MORPHINE [Concomitant]
     Active Substance: MORPHINE
     Route: 065
  6. NORTRIPTYLINE [Concomitant]
     Active Substance: NORTRIPTYLINE
  7. PANTOPRAZOLE [Concomitant]
     Active Substance: PANTOPRAZOLE SODIUM
  8. PREGABALINE [Concomitant]
     Active Substance: PREGABALIN
  9. SENOKOT [Concomitant]
     Active Substance: SENNOSIDES
  10. ACYCLOVIR. [Concomitant]
     Active Substance: ACYCLOVIR
  11. ALENDRONATE [Concomitant]
     Active Substance: ALENDRONATE SODIUM
  12. CYMBALTA [Concomitant]
     Active Substance: DULOXETINE HYDROCHLORIDE

REACTIONS (6)
  - Lower limb fracture [Unknown]
  - Scleroderma [Unknown]
  - Synovial cyst [Unknown]
  - Fall [Unknown]
  - Skin cancer [Unknown]
  - Off label use [Unknown]
